FAERS Safety Report 10150129 (Version 1)
Quarter: 2014Q2

REPORT INFORMATION
  Report Type: Spontaneous
  Country: RU (occurrence: RU)
  Receive Date: 20140502
  Receipt Date: 20140502
  Transmission Date: 20141212
  Serious: Yes (Other)
  Sender: FDA-Public Use
  Company Number: RU-ASTRAZENECA-2014SE28917

PATIENT
  Sex: Male

DRUGS (1)
  1. OMEZOL//OMEPRAZOLE [Suspect]
     Indication: GASTRITIS
     Dosage: 7 - 10 COURSE
     Route: 048

REACTIONS (1)
  - Off label use [Unknown]
